FAERS Safety Report 21873779 (Version 1)
Quarter: 2023Q1

REPORT INFORMATION
  Report Type: Spontaneous
  Country: IE (occurrence: IE)
  Receive Date: 20230117
  Receipt Date: 20230117
  Transmission Date: 20230417
  Serious: Yes (Life-Threatening, Hospitalization)
  Sender: FDA-Public Use
  Company Number: IE-BoehringerIngelheim-2023-BI-213070

PATIENT
  Age: 75 Year
  Sex: Female

DRUGS (3)
  1. DABIGATRAN [Suspect]
     Active Substance: DABIGATRAN
     Indication: Atrial fibrillation
  2. ESOMEPRAZOLE [Concomitant]
     Active Substance: ESOMEPRAZOLE
     Indication: Product used for unknown indication
  3. VITAMIN D [Concomitant]
     Active Substance: VITAMIN D NOS
     Indication: Product used for unknown indication

REACTIONS (9)
  - Gastrointestinal haemorrhage [Recovered/Resolved]
  - Toxicity to various agents [Recovered/Resolved]
  - General physical health deterioration [Recovered/Resolved]
  - Pneumonia [Recovered/Resolved]
  - Hypervolaemia [Recovered/Resolved]
  - Atrial fibrillation [Recovered/Resolved]
  - Colitis [Recovered/Resolved]
  - Diverticulum [Recovered/Resolved]
  - Rectal ulcer [Recovered/Resolved]
